FAERS Safety Report 14701273 (Version 1)
Quarter: 2018Q1

REPORT INFORMATION
  Report Type: Spontaneous
  Country: US (occurrence: US)
  Receive Date: 20180328
  Receipt Date: 20180328
  Transmission Date: 20180509
  Serious: No
  Sender: FDA-Public Use
  Company Number: None

PATIENT
  Age: 90 Year
  Sex: Female

DRUGS (1)
  1. LETAIRIS [Suspect]
     Active Substance: AMBRISENTAN
     Indication: SCLERODERMA
     Route: 048
     Dates: start: 20100824

REACTIONS (5)
  - Haemoglobin decreased [None]
  - Dizziness [None]
  - Dyspnoea [None]
  - Haematochezia [None]
  - Faeces discoloured [None]

NARRATIVE: CASE EVENT DATE: 20180321
